FAERS Safety Report 22169433 (Version 1)
Quarter: 2023Q2

REPORT INFORMATION
  Report Type: Spontaneous
  Country: IT (occurrence: IT)
  Receive Date: 20230404
  Receipt Date: 20230404
  Transmission Date: 20230722
  Serious: No
  Sender: FDA-Public Use
  Company Number: IT-ALKEM LABORATORIES LIMITED-IT-ALKEM-2022-11115

PATIENT
  Sex: Female

DRUGS (5)
  1. COLCHICINE [Suspect]
     Active Substance: COLCHICINE
     Indication: Pericarditis
     Dosage: UNK
     Route: 065
  2. ANAKINRA [Concomitant]
     Active Substance: ANAKINRA
     Indication: Pericarditis
     Dosage: 100 MG/D, QD (ADULTS)
     Route: 058
  3. ANAKINRA [Concomitant]
     Active Substance: ANAKINRA
     Dosage: 2 MILLIGRAM/KILOGRAM, QD (CHILDREN)
     Route: 058
  4. PREDNISONE [Concomitant]
     Active Substance: PREDNISONE
     Indication: Pericarditis
     Dosage: 5 MILLIGRAM (TAPERING EVERY WEEK IN ADULTS)
     Route: 065
  5. PREDNISONE [Concomitant]
     Active Substance: PREDNISONE
     Dosage: 0.2 MILLIGRAM/KILOGRAM, ONCE WEEKLY (EVERY WEEK IN CHILDREN)
     Route: 065

REACTIONS (1)
  - Drug ineffective [Unknown]
